FAERS Safety Report 5601835-X (Version None)
Quarter: 2008Q1

REPORT INFORMATION
  Report Type: 
  Country: None (occurrence: None)
  Receive Date: 20080124
  Receipt Date: 20080114
  Transmission Date: 20080703
  Serious: Yes (Other)
  Sender: FDA-Public Use
  Company Number: IE-PFIZER INC-2008001488

PATIENT
  Sex: Male
  Weight: 74.5 kg

DRUGS (2)
  1. LIPITOR [Suspect]
     Route: 048
     Dates: start: 20070213, end: 20071214
  2. CLOPIDOGREL [Concomitant]
     Route: 048

REACTIONS (12)
  - BALANCE DISORDER [None]
  - DIARRHOEA [None]
  - DIPLOPIA [None]
  - EYE DISCHARGE [None]
  - FEELING ABNORMAL [None]
  - HEADACHE [None]
  - INSOMNIA [None]
  - MUSCLE FATIGUE [None]
  - PHOTOSENSITIVITY REACTION [None]
  - PRURITUS [None]
  - RASH MACULAR [None]
  - RHINORRHOEA [None]
